FAERS Safety Report 5202695-1 (Version None)
Quarter: 2006Q4

REPORT INFORMATION
  Report Type: 
  Country: None (occurrence: None)
  Receive Date: 20061016
  Receipt Date: 20060803
  Transmission Date: 20070319
  Serious: No
  Sender: FDA-Public Use
  Company Number: 2006SP002892

PATIENT
  Age: 72 Year
  Sex: Female
  Weight: 49.8957 kg

DRUGS (8)
  1. LUNESTA [Suspect]
     Indication: INSOMNIA
     Dosage: 3 MG;HS;ORAL
     Route: 048
     Dates: start: 20060731
  2. ATORVASTATIN CALCIUM [Concomitant]
  3. MICARDIS [Concomitant]
  4. HORMONES AND RELATED AGENTS [Concomitant]
  5. FOSAMAX [Concomitant]
  6. LEVOTHYROXINE SODIUM [Concomitant]
  7. VITAMIN CAP [Concomitant]
  8. AMITRIPTYLINE HCL [Concomitant]

REACTIONS (1)
  - SOMNOLENCE [None]
